FAERS Safety Report 4617920-5 (Version None)
Quarter: 2005Q1

REPORT INFORMATION
  Report Type: 
  Country: None (occurrence: None)
  Receive Date: 20050322
  Receipt Date: 20050307
  Transmission Date: 20050727
  Serious: Yes (Life-Threatening, Hospitalization)
  Sender: FDA-Public Use
  Company Number: 05-157

PATIENT
  Age: 45 Year
  Sex: Female

DRUGS (2)
  1. FLUOXETINE [Suspect]
     Dosage: 20 MG/DAY
  2. NUROFEN PLUS [Concomitant]

REACTIONS (11)
  - ASTHENIA [None]
  - BLOOD BICARBONATE DECREASED [None]
  - BLOOD CHLORIDE INCREASED [None]
  - BLOOD CREATININE DECREASED [None]
  - DRUG SCREEN POSITIVE [None]
  - HEADACHE [None]
  - HYPOKALAEMIA [None]
  - PCO2 DECREASED [None]
  - POISONING DELIBERATE [None]
  - RENAL TUBULAR ACIDOSIS [None]
  - SOMNOLENCE [None]
